FAERS Safety Report 6671015-8 (Version None)
Quarter: 2010Q2

REPORT INFORMATION
  Report Type: 
  Country: None (occurrence: None)
  Receive Date: 20100406
  Receipt Date: 20100406
  Transmission Date: 20101027
  Serious: Yes (Hospitalization)
  Sender: FDA-Public Use
  Company Number: None

PATIENT
  Sex: Male
  Weight: 83.9154 kg

DRUGS (1)
  1. TERAZOSIN HCL [Suspect]
     Indication: HOSPITALISATION
     Dosage: 1 MG CAP
     Dates: start: 20100211, end: 20100213

REACTIONS (12)
  - AMNESIA [None]
  - BLOOD PRESSURE ABNORMAL [None]
  - CEREBROVASCULAR ACCIDENT [None]
  - DIZZINESS [None]
  - FALL [None]
  - FATIGUE [None]
  - HEADACHE [None]
  - HEART RATE INCREASED [None]
  - HYPERHIDROSIS [None]
  - MOOD ALTERED [None]
  - PHYSICAL ASSAULT [None]
  - VISION BLURRED [None]
